FAERS Safety Report 13700545 (Version 1)
Quarter: 2017Q2

REPORT INFORMATION
  Report Type: Spontaneous
  Country: US (occurrence: US)
  Receive Date: 20170629
  Receipt Date: 20170629
  Transmission Date: 20170830
  Serious: Yes (Other)
  Sender: FDA-Public Use
  Company Number: US-WEST-WARD PHARMACEUTICALS CORP.-US-H14001-17-02201

PATIENT
  Age: 50 Year
  Sex: Female

DRUGS (1)
  1. RISPERIDONE. [Suspect]
     Active Substance: RISPERIDONE
     Indication: PRODUCT USED FOR UNKNOWN INDICATION
     Route: 065

REACTIONS (6)
  - Fall [Unknown]
  - Tremor [Unknown]
  - Gait disturbance [Unknown]
  - Reduced facial expression [Unknown]
  - Extrapyramidal disorder [Unknown]
  - Parkinsonian gait [Unknown]
